FAERS Safety Report 7761296-1 (Version None)
Quarter: 2011Q3

REPORT INFORMATION
  Report Type: 
  Country: None (occurrence: None)
  Receive Date: 20110920
  Receipt Date: 20110913
  Transmission Date: 20111222
  Serious: Yes (Death)
  Sender: FDA-Public Use
  Company Number: US-CELGENEUS-163-21880-11091713

PATIENT
  Sex: Female

DRUGS (9)
  1. FUROSEMIDE [Concomitant]
     Route: 065
  2. RED YEAST RICE [Concomitant]
     Route: 065
  3. FISH OIL [Concomitant]
     Route: 065
  4. LEVOXYL [Concomitant]
     Route: 065
  5. REVLIMID [Suspect]
     Dosage: 25 MILLIGRAM
     Route: 048
     Dates: start: 20101020
  6. REVLIMID [Suspect]
     Dosage: 15 MILLIGRAM
     Route: 048
     Dates: start: 20110301
  7. AREDIA [Concomitant]
     Route: 065
  8. LASIX [Concomitant]
     Route: 065
  9. ASPIRIN [Concomitant]
     Route: 065

REACTIONS (1)
  - DEATH [None]
